FAERS Safety Report 9922291 (Version 1)
Quarter: 2014Q1

REPORT INFORMATION
  Report Type: Spontaneous
  Country: HK (occurrence: HK)
  Receive Date: 20140225
  Receipt Date: 20140225
  Transmission Date: 20141002
  Serious: Yes (Other)
  Sender: FDA-Public Use
  Company Number: HK-GLAXOSMITHKLINE-B0962457A

PATIENT
  Age: 32 Year
  Sex: Male
  Weight: 88 kg

DRUGS (5)
  1. TROBALT [Suspect]
     Indication: CONVULSION
     Dosage: 200MG THREE TIMES PER DAY
     Route: 048
     Dates: start: 20130919, end: 20131218
  2. CARBAMAZEPINE [Concomitant]
     Dosage: 600MG THREE TIMES PER DAY
     Dates: start: 20130919, end: 20131218
  3. CLONAZEPAM [Concomitant]
     Dosage: .5MG THREE TIMES PER DAY
     Dates: start: 20130919, end: 20131218
  4. PHENOBARBITAL [Concomitant]
     Dosage: 60MG PER DAY
     Dates: start: 20130919, end: 20131218
  5. QUETIAPINE [Concomitant]
     Dates: start: 20130919, end: 20131218

REACTIONS (4)
  - Convulsion [Not Recovered/Not Resolved]
  - Ataxia [Unknown]
  - Nystagmus [Unknown]
  - Polydipsia [Unknown]
